FAERS Safety Report 7352569-5 (Version None)
Quarter: 2011Q1

REPORT INFORMATION
  Report Type: 
  Country: None (occurrence: None)
  Receive Date: 20110304
  Receipt Date: 20110118
  Transmission Date: 20110831
  Serious: No
  Sender: FDA-Public Use
  Company Number: PI-05327

PATIENT

DRUGS (1)
  1. CHLORAPREP [Suspect]
     Indication: PREOPERATIVE CARE
     Dosage: ONCE, TOPICAL
     Route: 061
     Dates: start: 20101116

REACTIONS (5)
  - NECK PAIN [None]
  - ERYTHEMA [None]
  - BLISTER [None]
  - BURNS SECOND DEGREE [None]
  - SCAR [None]
